FAERS Safety Report 20480293 (Version 2)
Quarter: 2022Q1

REPORT INFORMATION
  Report Type: Spontaneous
  Country: HR (occurrence: HR)
  Receive Date: 20220216
  Receipt Date: 20220225
  Transmission Date: 20220424
  Serious: Yes (Other)
  Sender: FDA-Public Use
  Company Number: None

PATIENT
  Age: 56 Year
  Sex: Female
  Weight: 75 kg

DRUGS (4)
  1. OCREVUS [Suspect]
     Active Substance: OCRELIZUMAB
     Indication: Multiple sclerosis
     Dosage: CONCENTRATE FOR SOLUTION FOR INFUSION?LAST DOSE ADMINISTERED ON 13/NOV/2020
     Route: 042
     Dates: start: 20201113
  2. OCREVUS [Suspect]
     Active Substance: OCRELIZUMAB
     Dosage: CONCENTRATE FOR SOLUTION FOR INFUSION?LAST DOSE ADMINISTERED ON 27/NOV/2020
     Route: 042
     Dates: start: 20211127, end: 20211127
  3. COMIRNATY [Suspect]
     Active Substance: TOZINAMERAN
     Indication: COVID-19 immunisation
     Dosage: DOSE NUMBER: 2?DOSE ADMINISTERED ON 20/MAY/2021
     Route: 065
     Dates: start: 20210520
  4. COMIRNATY [Suspect]
     Active Substance: TOZINAMERAN
     Dosage: DOSE 1?LAST DOSE ADMINISTERED ON 21/APR/2021
     Route: 065
     Dates: start: 20210421

REACTIONS (1)
  - Pustular psoriasis [Recovering/Resolving]

NARRATIVE: CASE EVENT DATE: 20210601
